FAERS Safety Report 22613332 (Version 1)
Quarter: 2023Q2

REPORT INFORMATION
  Report Type: Spontaneous
  Country: FR (occurrence: FR)
  Receive Date: 20230619
  Receipt Date: 20230619
  Transmission Date: 20230721
  Serious: Yes (Congenital Anomaly)
  Sender: FDA-Public Use
  Company Number: None

PATIENT

DRUGS (1)
  1. TECFIDERA [Suspect]
     Active Substance: DIMETHYL FUMARATE
     Indication: Maternal exposure timing unspecified
     Route: 050

REACTIONS (1)
  - Osteochondrodysplasia [Not Recovered/Not Resolved]

NARRATIVE: CASE EVENT DATE: 20230401
